FAERS Safety Report 18528538 (Version 1)
Quarter: 2020Q4

REPORT INFORMATION
  Report Type: Spontaneous
  Country: US (occurrence: US)
  Receive Date: 20201120
  Receipt Date: 20201120
  Transmission Date: 20210114
  Serious: No
  Sender: FDA-Public Use
  Company Number: US-3M-2020-US-023781

PATIENT
  Age: 76 Year
  Sex: Female

DRUGS (2)
  1. DURAPREP [Suspect]
     Active Substance: IODINE POVACRYLEX\ISOPROPYL ALCOHOL
     Indication: INFECTION PROPHYLAXIS
     Dosage: 26 ML SINGLE DOSE
     Route: 061
     Dates: start: 20200813, end: 20200813
  2. DRESSING (BRAND UNSPECIFIED) SECURED WITH TAPE (BRAND UNKNOWN) [Concomitant]

REACTIONS (2)
  - Rash [Recovering/Resolving]
  - Blister [Recovering/Resolving]

NARRATIVE: CASE EVENT DATE: 20200819
